FAERS Safety Report 5918263-X (Version None)
Quarter: 2008Q4

REPORT INFORMATION
  Report Type: 
  Country: None (occurrence: None)
  Receive Date: 20081010
  Receipt Date: 20080924
  Transmission Date: 20090506
  Serious: Yes (Life-Threatening, Hospitalization)
  Sender: FDA-Public Use
  Company Number: 8035954

PATIENT
  Age: 55 Year
  Sex: Female

DRUGS (4)
  1. KEPPRA [Suspect]
     Indication: CONVULSION
     Dosage: 50 MG 2/D
     Dates: start: 20060101
  2. KEPPRA [Suspect]
     Indication: CONVULSION
     Dosage: 1500 MG /D PO
     Route: 048
  3. EVISTA [Concomitant]
  4. SYNTHROID [Concomitant]

REACTIONS (4)
  - DYSPHAGIA [None]
  - GAIT DISTURBANCE [None]
  - PNEUMONIA ASPIRATION [None]
  - TRANSIENT ISCHAEMIC ATTACK [None]
